FAERS Safety Report 4883613-2 (Version None)
Quarter: 2006Q1

REPORT INFORMATION
  Report Type: 
  Country: None (occurrence: None)
  Receive Date: 20060118
  Receipt Date: 20060116
  Transmission Date: 20060701
  Serious: Yes (Death, Life-Threatening)
  Sender: FDA-Public Use
  Company Number: 2006CG00118

PATIENT
  Age: 12 Hour
  Weight: 0.6 kg

DRUGS (2)
  1. TENORMIN [Suspect]
     Route: 064
  2. LOXEN [Suspect]
     Route: 064

REACTIONS (4)
  - CIRCULATORY COLLAPSE [None]
  - LOW CARDIAC OUTPUT SYNDROME [None]
  - MATERNAL DRUGS AFFECTING FOETUS [None]
  - RENAL FAILURE ACUTE [None]
